FAERS Safety Report 11806563 (Version 3)
Quarter: 2016Q1

REPORT INFORMATION
  Report Type: Spontaneous
  Country: JP (occurrence: JP)
  Receive Date: 20151207
  Receipt Date: 20160112
  Transmission Date: 20160525
  Serious: Yes (Other)
  Sender: FDA-Public Use
  Company Number: JP-GLAXOSMITHKLINE-JP2015JPN170341

PATIENT
  Age: 54 Year
  Sex: Male
  Weight: 52 kg

DRUGS (2)
  1. ZEFIX [Suspect]
     Active Substance: LAMIVUDINE
     Dosage: UNK
     Route: 048
  2. HEPSERA [Suspect]
     Active Substance: ADEFOVIR DIPIVOXIL
     Dosage: UNK
     Route: 048
     Dates: start: 20090107, end: 20140929

REACTIONS (7)
  - Gait disturbance [Unknown]
  - Viral infection [Unknown]
  - Fanconi syndrome [Recovering/Resolving]
  - Glomerular filtration rate decreased [Unknown]
  - Bone pain [Unknown]
  - Blood phosphorus decreased [Recovering/Resolving]
  - Blood alkaline phosphatase increased [Recovering/Resolving]

NARRATIVE: CASE EVENT DATE: 20120829
